FAERS Safety Report 9362125 (Version 2)
Quarter: 2013Q3

REPORT INFORMATION
  Report Type: Spontaneous
  Country: US (occurrence: US)
  Receive Date: 20130621
  Receipt Date: 20130725
  Transmission Date: 20140515
  Serious: Yes (Life-Threatening, Hospitalization)
  Sender: FDA-Public Use
  Company Number: US-ASTRAZENECA-2013SE42801

PATIENT
  Age: 78 Year
  Sex: Male
  Weight: 88.3 kg

DRUGS (10)
  1. BRILINTA [Suspect]
     Indication: ACUTE CORONARY SYNDROME
     Route: 048
     Dates: start: 20130508, end: 20130518
  2. BRILINTA [Suspect]
     Indication: PERCUTANEOUS CORONARY INTERVENTION
     Route: 048
     Dates: start: 20130508, end: 20130518
  3. BRILINTA [Suspect]
     Indication: STENT PLACEMENT
     Route: 048
     Dates: start: 20130508, end: 20130518
  4. OMEPRAZOLE [Suspect]
     Route: 048
  5. PLAVIX [Suspect]
     Route: 065
  6. ASPIRIN [Concomitant]
     Indication: ANTIPLATELET THERAPY
  7. ASPIRIN [Concomitant]
     Indication: ANTIPLATELET THERAPY
  8. GEMFIBROZIL [Concomitant]
  9. MICARDIS [Concomitant]
  10. LIPITOR [Concomitant]

REACTIONS (26)
  - Syncope [Recovered/Resolved]
  - Haemoglobin decreased [Recovered/Resolved]
  - Oesophagitis [Unknown]
  - Duodenitis [Unknown]
  - Epistaxis [Recovered/Resolved]
  - Gastrointestinal haemorrhage [Recovered/Resolved]
  - Gastritis [Unknown]
  - Atrial fibrillation [Unknown]
  - Myocardial infarction [Unknown]
  - Cardiac imaging procedure abnormal [Unknown]
  - Myocardial ischaemia [Unknown]
  - Coronary artery occlusion [Unknown]
  - Haematochezia [Unknown]
  - Hypertension [Unknown]
  - Osteoarthritis [Unknown]
  - Hyperlipidaemia [Unknown]
  - Gastric polyps [Unknown]
  - Hiatus hernia [Unknown]
  - Arthralgia [Unknown]
  - Palpitations [Unknown]
  - Coronary artery disease [Unknown]
  - Electrocardiogram abnormal [Unknown]
  - Asthenia [Unknown]
  - Arthralgia [Unknown]
  - Oedema peripheral [Unknown]
  - Oedema peripheral [Unknown]
